FAERS Safety Report 4523580-4 (Version None)
Quarter: 2004Q4

REPORT INFORMATION
  Report Type: 
  Country: None (occurrence: None)
  Receive Date: 20041117
  Receipt Date: 20040728
  Transmission Date: 20050328
  Serious: Yes (Hospitalization)
  Sender: FDA-Public Use
  Company Number: DE-JNJFOC-20040708161

PATIENT
  Age: 81 Year
  Sex: Female

DRUGS (14)
  1. LEVOFLOXACIN [Suspect]
     Indication: PNEUMONIA
     Dosage: INTRAVENOUS
     Route: 042
     Dates: start: 20030315, end: 20030316
  2. INSULIN [Concomitant]
  3. LASIX [Concomitant]
  4. LOPRESSOR [Concomitant]
  5. ZESTRIL [Concomitant]
  6. PRAVACHOL [Concomitant]
  7. ASPIRIN [Concomitant]
  8. ALBUTEROL [Concomitant]
  9. NEUTRAPHOS (NEUTRA-PHOS) [Concomitant]
  10. CARDIZEM [Concomitant]
  11. COUMADIN [Concomitant]
  12. PHENERGAN [Concomitant]
  13. FRAGMIN [Concomitant]
  14. MORPHINE SULFATE [Concomitant]

REACTIONS (3)
  - ATRIAL FIBRILLATION [None]
  - PNEUMONIA HERPES VIRAL [None]
  - RESPIRATORY DISTRESS [None]
